FAERS Safety Report 20512080 (Version 1)
Quarter: 2022Q1

REPORT INFORMATION
  Report Type: Spontaneous
  Country: US (occurrence: US)
  Receive Date: 20220224
  Receipt Date: 20220224
  Transmission Date: 20220423
  Serious: No
  Sender: FDA-Public Use
  Company Number: US-LUPIN PHARMACEUTICALS INC.-2022-02238

PATIENT
  Age: 69 Year
  Sex: Female
  Weight: 60.317 kg

DRUGS (1)
  1. CEPHALEXIN [Suspect]
     Active Substance: CEPHALEXIN
     Indication: Urinary tract infection
     Dosage: 1 DOSAGE FORM, TID
     Route: 048
     Dates: start: 20220205, end: 20220209

REACTIONS (10)
  - Scratch [Recovering/Resolving]
  - Rash pruritic [Recovering/Resolving]
  - Erythema [Recovering/Resolving]
  - Pruritus genital [Recovering/Resolving]
  - Vulvovaginal pruritus [Recovering/Resolving]
  - Diarrhoea [Recovering/Resolving]
  - Discomfort [Recovering/Resolving]
  - Haemorrhoidal haemorrhage [Recovering/Resolving]
  - Anorectal discomfort [Recovering/Resolving]
  - Abnormal faeces [Recovering/Resolving]

NARRATIVE: CASE EVENT DATE: 20220201
